FAERS Safety Report 20136979 (Version 2)
Quarter: 2022Q1

REPORT INFORMATION
  Report Type: Spontaneous
  Country: US (occurrence: US)
  Receive Date: 20211201
  Receipt Date: 20220113
  Transmission Date: 20220423
  Serious: No
  Sender: FDA-Public Use
  Company Number: US-MYLANLABS-2021M1076977

PATIENT
  Sex: Female

DRUGS (1)
  1. ESTRADIOL [Suspect]
     Active Substance: ESTRADIOL
     Indication: Product used for unknown indication
     Dosage: 1 GRAM, Q2W
     Route: 067

REACTIONS (3)
  - Incorrect dose administered [Not Recovered/Not Resolved]
  - Product packaging quantity issue [Not Recovered/Not Resolved]
  - Product container issue [Unknown]
